FAERS Safety Report 19460518 (Version 5)
Quarter: 2021Q4

REPORT INFORMATION
  Report Type: Spontaneous
  Country: CA (occurrence: CA)
  Receive Date: 20210625
  Receipt Date: 20211011
  Transmission Date: 20220304
  Serious: Yes (Hospitalization, Other)
  Sender: FDA-Public Use
  Company Number: CA-CELLTRION INC.-2021CA008701

PATIENT

DRUGS (16)
  1. INFLECTRA [Suspect]
     Active Substance: INFLIXIMAB-DYYB
     Indication: Colitis ulcerative
     Dosage: 1 DF (UNKNOWN DOSE/HOSPITAL START)
     Route: 042
     Dates: start: 20210306, end: 20210306
  2. INFLECTRA [Suspect]
     Active Substance: INFLIXIMAB-DYYB
     Dosage: 800 MG,2, 6 WEEKS, THEN EVERY 8 WEEKS
     Route: 042
     Dates: start: 20210319
  3. INFLECTRA [Suspect]
     Active Substance: INFLIXIMAB-DYYB
     Dosage: 800 MG,2, 6 WEEKS, THEN EVERY 8 WEEKS
     Route: 042
     Dates: start: 20210415
  4. INFLECTRA [Suspect]
     Active Substance: INFLIXIMAB-DYYB
     Dosage: 800 MG,2, 6 WEEKS, THEN EVERY 8 WEEKS
     Route: 042
     Dates: start: 20210610
  5. INFLECTRA [Suspect]
     Active Substance: INFLIXIMAB-DYYB
     Dosage: 800 MG,2, 6 WEEKS, THEN EVERY 8 WEEKS
     Route: 042
     Dates: start: 20210811
  6. INFLECTRA [Suspect]
     Active Substance: INFLIXIMAB-DYYB
     Dosage: 10 MG/KG EVERY 4 WEEKS
     Route: 042
     Dates: start: 20210908, end: 20210908
  7. CALCARB [Concomitant]
     Dosage: 1 DF (UNKNOWN DOSE)
     Route: 065
  8. GLICLAZIDE [Concomitant]
     Active Substance: GLICLAZIDE
     Dosage: 1 DF (UNKNOWN DOSE)
     Route: 065
  9. METFORMIN [Concomitant]
     Active Substance: METFORMIN HYDROCHLORIDE
     Dosage: 1 DF (UNKNOWN DOSE)
     Route: 065
  10. PANTOPRAZOLE [Concomitant]
     Active Substance: PANTOPRAZOLE
     Dosage: 1 DF (UNKNOWN DOSE)
     Route: 065
  11. PENTASA [Concomitant]
     Active Substance: MESALAMINE
     Dosage: 1 DF (UNKNOWN DOSE)
     Route: 065
  12. PREDNISONE [Concomitant]
     Active Substance: PREDNISONE
     Dosage: 1 DF (UNKNOWN DOSE)
     Route: 065
  13. RAMIPRIL [Concomitant]
     Active Substance: RAMIPRIL
     Dosage: 1 DF (UNKNOWN DOSE)
     Route: 065
  14. ROSUVASTATIN [Concomitant]
     Active Substance: ROSUVASTATIN
     Dosage: 1 DF (UNKNOWN DOSE)
     Route: 065
  15. SULFATRIM [Concomitant]
     Active Substance: SULFAMETHOXAZOLE\TRIMETHOPRIM
     Dosage: 1 DF (UNKNOWN DOSE)
     Route: 065
  16. CHOLECALCIFEROL [Concomitant]
     Active Substance: CHOLECALCIFEROL
     Dosage: 1 DF (UNKNOWN DOSE)
     Route: 065

REACTIONS (7)
  - Rectal haemorrhage [Unknown]
  - Off label use [Unknown]
  - Fatigue [Unknown]
  - Asthenia [Unknown]
  - Decreased appetite [Unknown]
  - Pallor [Unknown]
  - Feeling hot [Unknown]

NARRATIVE: CASE EVENT DATE: 20210830
